FAERS Safety Report 13729419 (Version 1)
Quarter: 2017Q3

REPORT INFORMATION
  Report Type: Spontaneous
  Country: CA (occurrence: CA)
  Receive Date: 20170707
  Receipt Date: 20170707
  Transmission Date: 20171127
  Serious: Yes (Other)
  Sender: FDA-Public Use
  Company Number: CA-TEVA-783830ACC

PATIENT
  Age: 44 Year
  Sex: Female

DRUGS (3)
  1. ESTRADIOL. [Suspect]
     Active Substance: ESTRADIOL
     Route: 030
  2. PROGESTERONE. [Concomitant]
     Active Substance: PROGESTERONE
     Indication: TRANSGENDER HORMONAL THERAPY
     Dosage: 200 MILLIGRAM DAILY;
     Route: 048
  3. ESTRADIOL. [Suspect]
     Active Substance: ESTRADIOL
     Indication: TRANSGENDER HORMONAL THERAPY
     Dosage: TRANSDERMAL GEL, USED SOMETIMES
     Route: 062

REACTIONS (3)
  - Deep vein thrombosis [Recovered/Resolved]
  - Overdose [Unknown]
  - Malaise [Recovered/Resolved]
